FAERS Safety Report 9258094 (Version 1)
Quarter: 2013Q2

REPORT INFORMATION
  Report Type: Spontaneous
  Country: US (occurrence: None)
  Receive Date: 20130424
  Receipt Date: 20130424
  Transmission Date: 20140414
  Serious: No
  Sender: FDA-Public Use
  Company Number: None

PATIENT
  Sex: 0

DRUGS (1)
  1. RISPERDAL CONSTA [Suspect]

REACTIONS (13)
  - Paralysis [None]
  - Spinal disorder [None]
  - Gait disturbance [None]
  - Exercise tolerance decreased [None]
  - Musculoskeletal stiffness [None]
  - Vibratory sense increased [None]
  - Skin exfoliation [None]
  - Speech disorder [None]
  - Reading disorder [None]
  - Feeling abnormal [None]
  - Swelling face [None]
  - Hyperacusis [None]
  - Dysphagia [None]
